FAERS Safety Report 16224212 (Version 2)
Quarter: 2019Q3

REPORT INFORMATION
  Report Type: Report from Study
  Country: US (occurrence: US)
  Receive Date: 20190422
  Receipt Date: 20190801
  Transmission Date: 20191004
  Serious: Yes (Death, Life-Threatening, Hospitalization, Disabling, Other)
  Sender: FDA-Public Use
  Company Number: US-GILEAD-2019-0395793

PATIENT
  Age: 54 Year
  Sex: Male
  Weight: 187 kg

DRUGS (25)
  1. AXICABTAGENE CILOLEUCEL [Suspect]
     Active Substance: AXICABTAGENE CILOLEUCEL
     Indication: DIFFUSE LARGE B-CELL LYMPHOMA
     Dosage: 68 ML
     Route: 042
     Dates: start: 20190211, end: 20190211
  2. BACTRIM DS [Concomitant]
     Active Substance: SULFAMETHOXAZOLE\TRIMETHOPRIM
     Dosage: 800/160,MG,EVERY OTHER DAY
     Route: 048
     Dates: start: 20190206, end: 20190327
  3. COMPAZINE [Concomitant]
     Active Substance: PROCHLORPERAZINE MALEATE
     Dosage: 10,MG,AS NECESSARY
     Route: 048
     Dates: start: 20190206, end: 20190328
  4. MORPHINE [Concomitant]
     Active Substance: MORPHINE
     Dosage: 4,MG,ONCE
     Route: 042
     Dates: start: 20190308, end: 20190308
  5. ALLOPURINOL. [Concomitant]
     Active Substance: ALLOPURINOL
  6. FLUDARABINE [Suspect]
     Active Substance: FLUDARABINE PHOSPHATE
     Indication: BONE MARROW CONDITIONING REGIMEN
     Dosage: 89 MG
     Route: 042
     Dates: start: 20190206, end: 20190206
  7. PAROXETINE. [Concomitant]
     Active Substance: PAROXETINE
     Indication: DEPRESSION
     Dosage: 40,MG,DAILY
     Route: 048
     Dates: start: 20040101
  8. MORPHINE [Concomitant]
     Active Substance: MORPHINE
     Dosage: 2,MG,AS NECESSARY
     Route: 042
     Dates: start: 20190328, end: 20190329
  9. CYCLOPHOSPHAMIDE. [Suspect]
     Active Substance: CYCLOPHOSPHAMIDE
     Dosage: 1490 MG
     Route: 042
     Dates: start: 20190207, end: 20190207
  10. FLUCONAZOLE. [Concomitant]
     Active Substance: FLUCONAZOLE
     Dosage: 200,MG,DAILY
     Route: 048
     Dates: start: 20190206, end: 20190315
  11. ACYCLOVIR [ACICLOVIR] [Concomitant]
     Active Substance: ACYCLOVIR
     Dosage: 400,MG,THREE TIMES DAILY
     Route: 048
     Dates: start: 20190206, end: 20190327
  12. CYCLOPHOSPHAMIDE. [Suspect]
     Active Substance: CYCLOPHOSPHAMIDE
     Indication: BONE MARROW CONDITIONING REGIMEN
     Dosage: 1490 MG
     Route: 042
     Dates: start: 20190206, end: 20190206
  13. FLUDARABINE [Suspect]
     Active Substance: FLUDARABINE PHOSPHATE
     Dosage: 89 MG
     Route: 042
     Dates: start: 20190207, end: 20190207
  14. ADVAIR HFA [Concomitant]
     Active Substance: FLUTICASONE PROPIONATE\SALMETEROL XINAFOATE
     Indication: ASTHMA
     Dosage: 1,OTHER,TWICE DAILY
     Route: 055
     Dates: start: 20140101
  15. ACYCLOVIR [ACICLOVIR] [Concomitant]
     Active Substance: ACYCLOVIR
     Dosage: 200,MG,THREE TIMES DAILY
     Route: 042
     Dates: start: 20190327, end: 20190328
  16. FLUDARABINE [Suspect]
     Active Substance: FLUDARABINE PHOSPHATE
     Dosage: 89 MG
     Route: 042
     Dates: start: 20190208, end: 20190208
  17. ATENOLOL. [Concomitant]
     Active Substance: ATENOLOL
     Indication: HYPERTENSION
     Dosage: 50,MG,DAILY
     Route: 048
     Dates: start: 20030101
  18. ACCOLATE [Concomitant]
     Active Substance: ZAFIRLUKAST
     Indication: ASTHMA
     Dosage: 20,MG,TWICE DAILY
     Route: 048
     Dates: start: 20040101
  19. VENTOLIN [Concomitant]
     Active Substance: ALBUTEROL SULFATE
     Dosage: 1,OTHER,AS NECESSARY
     Route: 055
     Dates: start: 20040101
  20. MORPHINE [Concomitant]
     Active Substance: MORPHINE
     Dosage: 2,MG,ONCE
     Route: 042
     Dates: start: 20190326, end: 20190326
  21. BENAZEPRIL [Concomitant]
     Active Substance: BENAZEPRIL HYDROCHLORIDE
     Indication: HYPERTENSION
     Dosage: 20,MG,DAILY
     Route: 048
     Dates: start: 20040101
  22. OXYCODONE [Concomitant]
     Active Substance: OXYCODONE
     Indication: PAIN
     Dosage: 10,MG,AS NECESSARY
     Route: 048
     Dates: start: 20190211
  23. MORPHINE [Concomitant]
     Active Substance: MORPHINE
     Dosage: 2,MG,AS NECESSARY
     Route: 042
     Dates: start: 20190327, end: 20190328
  24. CYCLOPHOSPHAMIDE. [Suspect]
     Active Substance: CYCLOPHOSPHAMIDE
     Dosage: 1490 MG
     Route: 042
     Dates: start: 20190208, end: 20190208
  25. SIMVASTATIN. [Concomitant]
     Active Substance: SIMVASTATIN
     Indication: BLOOD CHOLESTEROL INCREASED
     Dosage: 20,MG,DAILY
     Route: 048
     Dates: start: 20070101

REACTIONS (4)
  - Back pain [Not Recovered/Not Resolved]
  - Malaise [Not Recovered/Not Resolved]
  - Diffuse large B-cell lymphoma [Unknown]
  - B-cell lymphoma [Fatal]

NARRATIVE: CASE EVENT DATE: 20190308
